FAERS Safety Report 19806941 (Version 1)
Quarter: 2021Q3

REPORT INFORMATION
  Report Type: Spontaneous
  Country: GR (occurrence: GR)
  Receive Date: 20210908
  Receipt Date: 20210908
  Transmission Date: 20211014
  Serious: Yes (Death, Other)
  Sender: FDA-Public Use
  Company Number: GR-ASTRAZENECA-2021A717450

PATIENT
  Age: 60 Year
  Sex: Female

DRUGS (1)
  1. OLAPARIB. [Suspect]
     Active Substance: OLAPARIB
     Indication: OVARIAN CANCER
     Dosage: UNK
     Route: 048
     Dates: end: 2021

REACTIONS (1)
  - Acute leukaemia [Fatal]

NARRATIVE: CASE EVENT DATE: 2021
